FAERS Safety Report 8077897-X (Version None)
Quarter: 2012Q1

REPORT INFORMATION
  Report Type: 
  Country: None (occurrence: None)
  Receive Date: 20120127
  Receipt Date: 20120126
  Transmission Date: 20120608
  Serious: Yes (Hospitalization)
  Sender: FDA-Public Use
  Company Number: SE-MERCK-1201SWE00034

PATIENT
  Age: 60 Year
  Sex: Female

DRUGS (4)
  1. IRBESARTAN [Concomitant]
     Route: 048
  2. ZOCOR [Suspect]
     Indication: HYPERLIPIDAEMIA
     Route: 048
     Dates: end: 20110824
  3. ZOCOR [Suspect]
     Indication: HYPERTRIGLYCERIDAEMIA
     Route: 048
     Dates: end: 20110824
  4. FELODIPINE [Concomitant]
     Route: 065

REACTIONS (2)
  - PYREXIA [None]
  - C-REACTIVE PROTEIN INCREASED [None]
